FAERS Safety Report 7035475-5 (Version None)
Quarter: 2010Q4

REPORT INFORMATION
  Report Type: 
  Country: None (occurrence: None)
  Receive Date: 20101008
  Receipt Date: 20101001
  Transmission Date: 20110411
  Serious: Yes (Other)
  Sender: FDA-Public Use
  Company Number: US-PFIZER INC-2010117677

PATIENT
  Sex: Female
  Weight: 68.027 kg

DRUGS (2)
  1. CELEBREX [Suspect]
     Indication: ARTHRITIS
     Dosage: 200 MG, DAILY
     Route: 048
     Dates: start: 20100915
  2. BUSPIRONE [Concomitant]
     Indication: ANXIETY
     Dosage: 15 MG, UNK

REACTIONS (7)
  - BACK PAIN [None]
  - DYSPNOEA [None]
  - FEELING ABNORMAL [None]
  - PARAESTHESIA [None]
  - PYELONEPHRITIS [None]
  - PYREXIA [None]
  - TREMOR [None]
